FAERS Safety Report 5247075-8 (Version None)
Quarter: 2007Q1

REPORT INFORMATION
  Report Type: 
  Country: None (occurrence: None)
  Receive Date: 20070212
  Receipt Date: 20070208
  Transmission Date: 20070707
  Serious: Yes (Hospitalization)
  Sender: FDA-Public Use
  Company Number: 2007BI000550

PATIENT
  Age: 59 Year
  Sex: Female
  Weight: 73.9363 kg

DRUGS (12)
  1. AVONEX [Suspect]
     Indication: MULTIPLE SCLEROSIS
     Dosage: 30 UG;QW;IM
     Route: 030
     Dates: start: 20060701, end: 20061125
  2. AVONEX [Suspect]
     Indication: MULTIPLE SCLEROSIS
     Dosage: 30 UG;QW;IM
     Route: 030
     Dates: start: 20061223
  3. IBUPROFEN [Concomitant]
  4. LIPITOR [Concomitant]
  5. LYRICA [Concomitant]
  6. SERTRALINE [Concomitant]
  7. OLMESARTAN [Concomitant]
  8. MODAFINIL [Concomitant]
  9. GABAPENTIN [Concomitant]
  10. NEXIUM [Concomitant]
  11. FLEXERIL [Concomitant]
  12. KLONOPIN [Concomitant]

REACTIONS (8)
  - ANAEMIA POSTOPERATIVE [None]
  - BLOOD GLUCOSE INCREASED [None]
  - HAEMORRHAGE [None]
  - HIP ARTHROPLASTY [None]
  - INFLUENZA LIKE ILLNESS [None]
  - INJECTION SITE BRUISING [None]
  - NAUSEA [None]
  - SUPERFICIAL INJURY OF EYE [None]
